FAERS Safety Report 22059529 (Version 1)
Quarter: 2023Q1

REPORT INFORMATION
  Report Type: Spontaneous
  Country: US (occurrence: US)
  Receive Date: 20230303
  Receipt Date: 20230303
  Transmission Date: 20230418
  Serious: No
  Sender: FDA-Public Use
  Company Number: US-BAYER-2023A025291

PATIENT
  Age: 53 Year
  Sex: Female
  Weight: 43.084 kg

DRUGS (2)
  1. ESTRADIOL [Suspect]
     Active Substance: ESTRADIOL
     Indication: Hot flush
     Dosage: 0.05 MG, QD
     Route: 062
     Dates: start: 20230210, end: 20230223
  2. ESTRADIOL [Suspect]
     Active Substance: ESTRADIOL
     Indication: Menopause

REACTIONS (2)
  - Application site rash [Recovered/Resolved]
  - Application site pruritus [Recovered/Resolved]

NARRATIVE: CASE EVENT DATE: 20230210
